FAERS Safety Report 13943824 (Version 1)
Quarter: 2017Q3

REPORT INFORMATION
  Report Type: Spontaneous
  Country: US (occurrence: US)
  Receive Date: 20170907
  Receipt Date: 20170907
  Transmission Date: 20171128
  Serious: Yes (Hospitalization)
  Sender: FDA-Public Use
  Company Number: US-ROCHE-1452640

PATIENT
  Age: 77 Year
  Sex: Female
  Weight: 41.77 kg

DRUGS (9)
  1. PREDNISONE. [Concomitant]
     Active Substance: PREDNISONE
     Route: 048
  2. LEVOTHYROXINE. [Concomitant]
     Active Substance: LEVOTHYROXINE
     Route: 048
  3. HYDROXYCHLOROQUINE [Concomitant]
     Active Substance: HYDROXYCHLOROQUINE
     Route: 048
  4. RABEPRAZOLE [Concomitant]
     Active Substance: RABEPRAZOLE
     Route: 048
  5. CITALOPRAM [Concomitant]
     Active Substance: CITALOPRAM HYDROBROMIDE
     Route: 048
  6. ASPIRIN. [Concomitant]
     Active Substance: ASPIRIN
     Route: 048
  7. VALSARTAN. [Concomitant]
     Active Substance: VALSARTAN
     Route: 048
  8. RITUXAN [Suspect]
     Active Substance: RITUXIMAB
     Indication: RHEUMATOID ARTHRITIS
     Dosage: X2
     Route: 042
     Dates: start: 20110901, end: 20140612
  9. TOLTERODINE [Concomitant]
     Active Substance: TOLTERODINE
     Route: 048

REACTIONS (2)
  - Arthritis bacterial [Recovering/Resolving]
  - Histoplasmosis [Unknown]

NARRATIVE: CASE EVENT DATE: 20140805
